FAERS Safety Report 25851989 (Version 1)
Quarter: 2025Q3

REPORT INFORMATION
  Report Type: Spontaneous
  Country: JP (occurrence: JP)
  Receive Date: 20250926
  Receipt Date: 20250926
  Transmission Date: 20251021
  Serious: Yes (Hospitalization, Other)
  Sender: PHARMOBEDIENT CONSULTING, LLC
  Company Number: JP-Pharmobedient-000260

PATIENT
  Age: 27 Year
  Sex: Female

DRUGS (9)
  1. AZITHROMYCIN [Suspect]
     Active Substance: AZITHROMYCIN
     Indication: Pneumonia
  2. AMOXICILLIN\CLAVULANIC ACID [Suspect]
     Active Substance: AMOXICILLIN\CLAVULANIC ACID
     Indication: Pneumonia
     Dosage: 500 MG/125 MG
  3. MILNACIPRAN [Concomitant]
     Active Substance: MILNACIPRAN
     Indication: Depression
  4. AMITRIPTYLINE HYDROCHLORIDE [Concomitant]
     Active Substance: AMITRIPTYLINE HYDROCHLORIDE
     Indication: Depression
  5. ARIPIPRAZOLE [Concomitant]
     Active Substance: ARIPIPRAZOLE
     Indication: Depression
  6. FLUNITRAZEPAM [Concomitant]
     Active Substance: FLUNITRAZEPAM
     Indication: Depression
  7. ETIZOLAM [Concomitant]
     Active Substance: ETIZOLAM
     Indication: Depression
  8. BIPERIDEN HYDROCHLORIDE [Concomitant]
     Active Substance: BIPERIDEN HYDROCHLORIDE
     Indication: Depression
  9. LEVOMEPROMAZINE MALEATE [Concomitant]
     Active Substance: LEVOMEPROMAZINE MALEATE
     Indication: Depression

REACTIONS (2)
  - Drug resistance [Unknown]
  - Acute respiratory distress syndrome [Recovered/Resolved]
